FAERS Safety Report 24635906 (Version 1)
Quarter: 2024Q4

REPORT INFORMATION
  Report Type: Spontaneous
  Country: US (occurrence: US)
  Receive Date: 20241119
  Receipt Date: 20241119
  Transmission Date: 20250115
  Serious: No
  Sender: CATALYST PHARMA
  Company Number: US-CATALYST PHARMACEUTICALS-US-CATA-24-01065

PATIENT
  Age: 15 Year
  Sex: Male
  Weight: 55.4 kg

DRUGS (35)
  1. AGAMREE [Suspect]
     Active Substance: VAMOROLONE
     Indication: Duchenne muscular dystrophy
     Dosage: 7 ML ONCE A DAY (6 MG/KG)
     Route: 048
     Dates: start: 20240621
  2. TUMS [Concomitant]
     Active Substance: CALCIUM CARBONATE
     Indication: Product used for unknown indication
     Dosage: 500 MG TWICE A DAY
     Route: 065
  3. ATALUREN [Concomitant]
     Active Substance: ATALUREN
     Indication: Product used for unknown indication
     Dosage: DAILY
     Route: 065
  4. CARVEDILOL [Concomitant]
     Active Substance: CARVEDILOL
     Indication: Product used for unknown indication
     Dosage: 6.25 MG TWICE A DAY
     Route: 048
  5. CARVEDILOL [Concomitant]
     Active Substance: CARVEDILOL
     Dosage: ONE TABLET TWICE A DAY
     Route: 048
  6. COENZYME Q10 [Concomitant]
     Active Substance: DIETARY SUPPLEMENT\UBIDECARENONE
     Indication: Product used for unknown indication
     Dosage: 200 MG ONCE A DAY
     Route: 048
  7. COENZYME Q10 [Concomitant]
     Active Substance: DIETARY SUPPLEMENT\UBIDECARENONE
     Dosage: 1 CAPSULE QDAY
     Route: 048
  8. LISINOPRIL [Concomitant]
     Active Substance: LISINOPRIL
     Indication: Product used for unknown indication
     Dosage: 10 MG DAILY
     Route: 048
  9. PROLIA [Concomitant]
     Active Substance: DENOSUMAB
     Indication: Product used for unknown indication
     Dosage: 60 MG PER ML SUBCUTANEOUS EVERY 6 MONTHS
     Route: 058
  10. VITAMIN D3 [Concomitant]
     Active Substance: CHOLECALCIFEROL
     Indication: Product used for unknown indication
     Dosage: 2000 UNITS DAILY (1 CAPSULE)
     Route: 048
  11. CALCIUM CARBONATE [Concomitant]
     Active Substance: CALCIUM CARBONATE
     Indication: Product used for unknown indication
     Dosage: 1 TABLET BID
     Route: 048
  12. PROPARACAINE [Concomitant]
     Active Substance: PROPARACAINE
     Indication: Product used for unknown indication
     Dosage: 1 DROP, BOTH EYES, ONE TIME ONLY
     Route: 047
  13. TROPICAMIDE [Concomitant]
     Active Substance: TROPICAMIDE
     Indication: Product used for unknown indication
     Dosage: 1 DROP, BOTH EYES, ONE TIME ONLY
     Route: 047
  14. TESTOSTERONE [Concomitant]
     Active Substance: TESTOSTERONE
     Indication: Hypogonadism male
     Dosage: 75 MG ONE TIME ONLY
     Route: 030
  15. TESTOSTERONE [Concomitant]
     Active Substance: TESTOSTERONE
     Indication: Adrenal suppression
     Dosage: 50 MG ONE TIME ONLY
     Route: 030
  16. TESTOSTERONE [Concomitant]
     Active Substance: TESTOSTERONE
     Indication: Osteoporosis
     Dosage: 50 MG ONE TIME ONLY
     Route: 030
  17. TESTOSTERONE [Concomitant]
     Active Substance: TESTOSTERONE
     Indication: Duchenne muscular dystrophy
     Dosage: 50 MG ONE TIME ONLY
     Route: 030
  18. TESTOSTERONE [Concomitant]
     Active Substance: TESTOSTERONE
     Indication: Chronic kidney disease
     Dosage: 75 MG ONE TIME ONLY
     Route: 030
  19. TESTOSTERONE [Concomitant]
     Active Substance: TESTOSTERONE
     Dosage: 50 MG ONE TIME ONLY
     Route: 030
  20. TESTOSTERONE [Concomitant]
     Active Substance: TESTOSTERONE
     Indication: Product used for unknown indication
     Dosage: 50 MG Q28DAY (EVERY 28 DAYS)
     Route: 030
  21. HYDROCORTISONE [Concomitant]
     Active Substance: HYDROCORTISONE
     Indication: Stress
     Dosage: 1.5 TABLETS EVERY 8 HOURS PRN
     Route: 048
  22. HYDROCORTISONE [Concomitant]
     Active Substance: HYDROCORTISONE
     Indication: Illness
  23. HYDROCORTISONE [Concomitant]
     Active Substance: HYDROCORTISONE
     Indication: Injury
  24. ALBUTEROL [Concomitant]
     Active Substance: ALBUTEROL
     Indication: Pulmonary congestion
     Dosage: 2 PUFFS, Q4H, PRN USE WITH SPACER CHAMBER
     Route: 055
  25. ALBUTEROL [Concomitant]
     Active Substance: ALBUTEROL
     Indication: Cough
  26. SPIRONOLACTONE [Concomitant]
     Active Substance: SPIRONOLACTONE
     Indication: Product used for unknown indication
     Dosage: 1 TABLET QDAY
     Route: 048
  27. FLUTICASONE [Concomitant]
     Active Substance: FLUTICASONE
     Indication: Product used for unknown indication
     Dosage: 2 PUFFS BID, RINSE MOUTH AFTER EACH USE
     Route: 055
  28. LORATADINE [Concomitant]
     Active Substance: LORATADINE
     Indication: Hypersensitivity
     Dosage: 1 TABLET QDAY, PRN
     Route: 048
  29. ALBUTEROL [Concomitant]
     Active Substance: ALBUTEROL
     Indication: Pulmonary congestion
     Dosage: 2.5 MG (3ML) Q4H, PRN
     Route: 055
  30. ALBUTEROL [Concomitant]
     Active Substance: ALBUTEROL
     Indication: Cough
  31. DENOSUMAB [Concomitant]
     Active Substance: DENOSUMAB
     Indication: Product used for unknown indication
     Dosage: 60 MG ONE TIME ONLY, EVERY SIX MONTHS TREATMENT
     Route: 058
  32. FAMOTIDINE [Concomitant]
     Active Substance: FAMOTIDINE
     Indication: Product used for unknown indication
     Dosage: 30 G EVERY NIGHT AT BEDTIME (QHS)
     Route: 048
  33. SOLU-CORTEF [Concomitant]
     Active Substance: HYDROCORTISONE SODIUM SUCCINATE
     Indication: Illness
     Dosage: 100 MG AS NEEDED
     Route: 030
  34. MIRALAX [Concomitant]
     Active Substance: POLYETHYLENE GLYCOL 3350
     Indication: Abdominal pain lower
     Dosage: 17 G QDAY
     Route: 048
  35. FLONASE [Concomitant]
     Active Substance: FLUTICASONE PROPIONATE
     Indication: Hypersensitivity
     Dosage: 2 SPRAY, NARES BOTH, QDAY, PRN
     Route: 045

REACTIONS (1)
  - Gastroenteritis viral [Recovered/Resolved]

NARRATIVE: CASE EVENT DATE: 20240909
